FAERS Safety Report 7214153 (Version 2)
Quarter: 2018Q4

REPORT INFORMATION
  Report Type: Spontaneous
  Country: IT (occurrence: IT)
  Receive Date: 20091214
  Receipt Date: 20181221
  Transmission Date: 20190205
  Serious: Yes (Hospitalization)
  Sender: FDA-Public Use
  Company Number: IT-ASTRAZENECA-2009SE30367

PATIENT
  Age: 41 Year
  Sex: Female

DRUGS (8)
  1. AURANTIN [Suspect]
     Active Substance: PHENYTOIN SODIUM
     Indication: EPILEPSY
     Route: 042
     Dates: start: 20091101, end: 20091120
  2. DEFLAMON [Suspect]
     Active Substance: METRONIDAZOLE
     Indication: ENCEPHALITIS
     Route: 042
     Dates: start: 20091028, end: 20091120
  3. HEPARIN-FRACTION, SODIUM SALT [Suspect]
     Active Substance: HEPARIN SODIUM
     Indication: PROPHYLAXIS
     Route: 058
     Dates: start: 20091010, end: 20091127
  4. DEXAMETHASONE PHOSPHATE [Concomitant]
     Active Substance: DEXAMETHASONE PHOSPHATE
     Indication: CEREBRAL OEDEMA MANAGEMENT
     Route: 042
     Dates: start: 20091010, end: 20091127
  5. DIFLUCAN [Suspect]
     Active Substance: FLUCONAZOLE
     Indication: FUNGAL SKIN INFECTION
     Route: 042
     Dates: start: 20091117, end: 20091120
  6. MERREM [Suspect]
     Active Substance: MEROPENEM
     Indication: ENCEPHALITIS
     Route: 042
     Dates: start: 20091028, end: 20091120
  7. VANCOMYCIN HYDROCHLORIDE. [Suspect]
     Active Substance: VANCOMYCIN HYDROCHLORIDE
     Indication: ENCEPHALITIS
     Route: 042
     Dates: start: 20091114, end: 20091120
  8. ENOXAPARIN SODIUM. [Suspect]
     Active Substance: ENOXAPARIN SODIUM
     Indication: THROMBOSIS PROPHYLAXIS
     Route: 058
     Dates: start: 20091010, end: 20091127

REACTIONS (1)
  - Rash maculo-papular [Not Recovered/Not Resolved]

NARRATIVE: CASE EVENT DATE: 20091120
